FAERS Safety Report 7246650-9 (Version None)
Quarter: 2011Q1

REPORT INFORMATION
  Report Type: 
  Country: None (occurrence: None)
  Receive Date: 20110127
  Receipt Date: 20110121
  Transmission Date: 20110831
  Serious: No
  Sender: FDA-Public Use
  Company Number: US-BIOGENIDEC-2011BI002671

PATIENT
  Age: 34 Year
  Sex: Male

DRUGS (1)
  1. TYSABRI [Suspect]
     Indication: MULTIPLE SCLEROSIS
     Route: 042
     Dates: start: 20100414

REACTIONS (5)
  - MOOD ALTERED [None]
  - VISION BLURRED [None]
  - URTICARIA [None]
  - LETHARGY [None]
  - CONFUSIONAL STATE [None]
